FAERS Safety Report 10021232 (Version 1)
Quarter: 2014Q1

REPORT INFORMATION
  Report Type: Spontaneous
  Country: US (occurrence: None)
  Receive Date: 20140318
  Receipt Date: 20140318
  Transmission Date: 20141002
  Serious: Yes (Life-Threatening, Disabling)
  Sender: FDA-Public Use
  Company Number: None

PATIENT
  Age: 57 Year
  Sex: 0
  Weight: 96.62 kg

DRUGS (1)
  1. VOLTAREN [Suspect]
     Indication: MUSCULOSKELETAL PAIN
     Dosage: ONE DOSE
     Route: 048

REACTIONS (8)
  - Vomiting [None]
  - Haematemesis [None]
  - Ascites [None]
  - Asthenia [None]
  - Renal failure [None]
  - Hepatic failure [None]
  - Dehydration [None]
  - Pollakiuria [None]
